FAERS Safety Report 21255249 (Version 2)
Quarter: 2023Q2

REPORT INFORMATION
  Report Type: Report from Study
  Country: US (occurrence: US)
  Receive Date: 20220825
  Receipt Date: 20230630
  Transmission Date: 20230721
  Serious: Yes (Hospitalization)
  Sender: FDA-Public Use
  Company Number: US-GW PHARMA-202109USGW04575

PATIENT
  Sex: Male

DRUGS (2)
  1. EPIDIOLEX [Suspect]
     Active Substance: CANNABIDIOL
     Indication: Seizure
     Dosage: 400 MILLIGRAM, UNK
     Route: 048
     Dates: start: 202105
  2. EPIDIOLEX [Suspect]
     Active Substance: CANNABIDIOL
     Dosage: 2 MILLILITER
     Route: 048
     Dates: start: 202105

REACTIONS (2)
  - Emergency care [Unknown]
  - Hospitalisation [Unknown]

NARRATIVE: CASE EVENT DATE: 20210101
